FAERS Safety Report 19960224 (Version 1)
Quarter: 2021Q4

REPORT INFORMATION
  Report Type: Spontaneous
  Country: CN (occurrence: CN)
  Receive Date: 20211015
  Receipt Date: 20211015
  Transmission Date: 20220303
  Serious: Yes (Other)
  Sender: FDA-Public Use
  Company Number: CN-BAXTER-2021BAX028519

PATIENT
  Age: 66 Year
  Sex: Female
  Weight: 41 kg

DRUGS (7)
  1. CYCLOPHOSPHAMIDE [Suspect]
     Active Substance: CYCLOPHOSPHAMIDE
     Indication: Angioimmunoblastic T-cell lymphoma stage III
     Dosage: 0.9% NS 100ML + CYCLOPHOSPHAMIDE FOR INJECTION 0.9G
     Route: 041
     Dates: start: 20200619, end: 20200619
  2. DOXORUBICIN HYDROCHLORIDE [Suspect]
     Active Substance: DOXORUBICIN HYDROCHLORIDE
     Indication: Angioimmunoblastic T-cell lymphoma stage III
     Dosage: 5% GS250ML + DOXORUBICIN HYDROCHLORIDE LIPOSOME INJECTION 40MG
     Route: 041
     Dates: start: 20200619, end: 20200619
  3. VINDESINE SULFATE [Suspect]
     Active Substance: VINDESINE SULFATE
     Indication: Angioimmunoblastic T-cell lymphoma stage III
     Dosage: 0.9% NS 100ML + VINDESINE SULFATE 4MG
     Route: 041
     Dates: start: 20200619, end: 20200619
  4. SODIUM CHLORIDE [Suspect]
     Active Substance: SODIUM CHLORIDE
     Indication: Medication dilution
     Route: 041
     Dates: start: 20200619, end: 20200619
  5. DEXTROSE [Suspect]
     Active Substance: DEXTROSE
     Indication: Medication dilution
     Dosage: 5% GS250ML + DOXORUBICIN HYDROCHLORIDE LIPOSOME INJECTION 40MG
     Route: 041
     Dates: start: 20200619, end: 20200619
  6. Puluolin [Concomitant]
     Indication: Prophylaxis
     Dosage: 0.9% NS 10ML + TROPISETRON HYDROCHLORIDE INJECTION 5MG
     Route: 050
     Dates: start: 20200619, end: 20200619
  7. SODIUM CHLORIDE [Concomitant]
     Active Substance: SODIUM CHLORIDE
     Indication: Medication dilution
     Dosage: 0.9% NS 10ML + TROPISETRON HYDROCHLORIDE INJECTION 5MG
     Route: 050
     Dates: start: 20200619, end: 20200619

REACTIONS (3)
  - Hypoaesthesia oral [Recovered/Resolved]
  - Hypoaesthesia oral [Recovered/Resolved]
  - Face oedema [Recovered/Resolved]

NARRATIVE: CASE EVENT DATE: 20200619
